FAERS Safety Report 5106899-8 (Version None)
Quarter: 2006Q3

REPORT INFORMATION
  Report Type: 
  Country: None (occurrence: None)
  Receive Date: 20060913
  Receipt Date: 20060906
  Transmission Date: 20061208
  Serious: Yes (Death, Disabling)
  Sender: FDA-Public Use
  Company Number: HQWYE380106SEP06

PATIENT
  Sex: Male

DRUGS (9)
  1. AMIODARONE    (AMIODARONE) [Suspect]
     Dosage: 1 UNIT QD ORAL
     Route: 048
     Dates: start: 20050401, end: 20060414
  2. ALLOPURINOL [Concomitant]
  3. AMLODIPINE [Concomitant]
  4. ASPIRIN [Concomitant]
  5. ATORVASTATIN CALCIUM [Concomitant]
  6. BISOPROLOL FUMARATE [Concomitant]
  7. OMACOR            (OMEGA-3 POLYUNSATURATED FATTY ACIDS) [Concomitant]
  8. RAMIPRIL [Concomitant]
  9. SERETIDE                (SALMETEROL/FLUTICASONE) [Concomitant]

REACTIONS (3)
  - ACUTE MYOCARDIAL INFARCTION [None]
  - LEFT VENTRICULAR FAILURE [None]
  - PNEUMONITIS [None]
